FAERS Safety Report 7629998-5 (Version None)
Quarter: 2011Q3

REPORT INFORMATION
  Report Type: 
  Country: None (occurrence: None)
  Receive Date: 20110722
  Receipt Date: 20110713
  Transmission Date: 20111222
  Serious: Yes (Hospitalization)
  Sender: FDA-Public Use
  Company Number: DE-SANOFI-AVENTIS-2011SA044888

PATIENT
  Age: 73 Year
  Sex: Male
  Weight: 78 kg

DRUGS (9)
  1. DOCETAXEL [Suspect]
     Indication: NON-SMALL CELL LUNG CANCER METASTATIC
     Route: 042
     Dates: start: 20110531, end: 20110531
  2. RAMIPRIL [Concomitant]
     Route: 065
     Dates: start: 20110406
  3. DOCETAXEL [Suspect]
     Route: 042
     Dates: start: 20110616, end: 20110616
  4. MADOPAR [Concomitant]
     Route: 065
  5. NOVOSULFIN [Concomitant]
     Route: 065
     Dates: start: 20110629
  6. INVESTIGATIONAL DRUG [Suspect]
     Indication: NON-SMALL CELL LUNG CANCER METASTATIC
     Route: 042
     Dates: start: 20110524, end: 20110623
  7. ERYTHROMYCIN ETHYLSUCCINATE/SULFAFURAZOLE ACETYL [Concomitant]
     Route: 065
     Dates: start: 20110519
  8. BISOPROLOL [Concomitant]
     Route: 065
     Dates: start: 20110628
  9. MADOPAR 62.5 [Concomitant]
     Route: 065

REACTIONS (2)
  - C-REACTIVE PROTEIN INCREASED [None]
  - ABDOMINAL SYMPTOM [None]
